FAERS Safety Report 8564223 (Version 3)
Quarter: 2012Q4

REPORT INFORMATION
  Report Type: Report from Study
  Country: JP (occurrence: JP)
  Receive Date: 20120516
  Receipt Date: 20121010
  Transmission Date: 20130627
  Serious: Yes (Hospitalization)
  Sender: FDA-Public Use
  Company Number: JP-ABBOTT-12P-087-0933878-00

PATIENT
  Age: 43 Year
  Sex: Female
  Weight: 45 kg

DRUGS (7)
  1. HUMIRA 40 MG/ 0.8 ML PRE-FILLED SYRINGE [Suspect]
     Indication: ANKYLOSING SPONDYLITIS
     Route: 058
     Dates: start: 20111208, end: 20120229
  2. HUMIRA 40 MG/ 0.8 ML PRE-FILLED SYRINGE [Suspect]
     Dates: start: 20120523
  3. VOLTAREN [Suspect]
     Indication: ANKYLOSING SPONDYLITIS
     Route: 048
     Dates: end: 20120214
  4. BUPRENORPHINE HYDROCHLORIDE [Suspect]
     Indication: ANKYLOSING SPONDYLITIS
     Route: 054
  5. BUPRENORPHINE HYDROCHLORIDE [Suspect]
     Indication: ANALGESIC THERAPY
  6. SALAZOSULFAPYRIDINE [Concomitant]
     Indication: ANKYLOSING SPONDYLITIS
     Route: 048
  7. BUPRENORPHINE [Concomitant]
     Indication: ANALGESIC THERAPY
     Route: 054

REACTIONS (1)
  - Gastric ulcer perforation [Recovering/Resolving]
